FAERS Safety Report 13164889 (Version 3)
Quarter: 2017Q1

REPORT INFORMATION
  Report Type: Report from Study
  Country: None (occurrence: NL)
  Receive Date: 20170130
  Receipt Date: 20170301
  Transmission Date: 20170428
  Serious: Yes (Hospitalization, Other)
  Sender: FDA-Public Use
  Company Number: NL-ABBVIE-17P-114-1857622-00

PATIENT
  Age: 72 Year
  Sex: Male

DRUGS (7)
  1. OMEPRAZOLE. [Concomitant]
     Active Substance: OMEPRAZOLE
     Indication: PRODUCT USED FOR UNKNOWN INDICATION
  2. SODIUM CHLORIDE. [Concomitant]
     Active Substance: SODIUM CHLORIDE
     Indication: PRODUCT USED FOR UNKNOWN INDICATION
     Route: 048
  3. PARACETAMOL [Concomitant]
     Active Substance: ACETAMINOPHEN
     Indication: PRODUCT USED FOR UNKNOWN INDICATION
  4. CLOZAPINE. [Concomitant]
     Active Substance: CLOZAPINE
     Indication: PRODUCT USED FOR UNKNOWN INDICATION
  5. CHOLECALCIFEROL [Concomitant]
     Active Substance: CHOLECALCIFEROL
     Indication: PRODUCT USED FOR UNKNOWN INDICATION
     Route: 048
  6. CARBOMER [Concomitant]
     Active Substance: CARBOMER
     Indication: PRODUCT USED FOR UNKNOWN INDICATION
     Dosage: 2 MG/GOPHTHALMIC GEL
     Route: 047
  7. DUODOPA [Suspect]
     Active Substance: CARBIDOPA\LEVODOPA
     Indication: PARKINSON^S DISEASE
     Dosage: MORNING DOSE: 11.7, CONTINUOUS DOSE: 5.8, EXTRA DOSE: 7.5, NIGHT DOSE: 4.5
     Route: 050
     Dates: start: 20090617

REACTIONS (15)
  - Cataract [Unknown]
  - Device alarm issue [Recovered/Resolved]
  - Orthostatic hypotension [Unknown]
  - On and off phenomenon [Unknown]
  - Device kink [Recovered/Resolved]
  - Blood pressure fluctuation [Recovering/Resolving]
  - Lower urinary tract symptoms [Unknown]
  - Device dislocation [Recovered/Resolved]
  - Hypokalaemia [Recovering/Resolving]
  - Device occlusion [Unknown]
  - Muscle rigidity [Recovering/Resolving]
  - Autonomic nervous system imbalance [Not Recovered/Not Resolved]
  - Parkinson^s disease [Not Recovered/Not Resolved]
  - Cataract [Unknown]
  - Device occlusion [Recovered/Resolved]

NARRATIVE: CASE EVENT DATE: 2012
